FAERS Safety Report 7475593-0 (Version None)
Quarter: 2011Q2

REPORT INFORMATION
  Report Type: 
  Country: None (occurrence: None)
  Receive Date: 20110510
  Receipt Date: 20110510
  Transmission Date: 20111010
  Serious: Yes (Life-Threatening)
  Sender: FDA-Public Use
  Company Number: None

PATIENT
  Age: 31 Year
  Sex: Female
  Weight: 65.7716 kg

DRUGS (1)
  1. NORETHINDRONE [Suspect]
     Indication: CONTRACEPTION
     Dates: start: 20080915, end: 20100212

REACTIONS (5)
  - PREGNANCY [None]
  - HAEMORRHAGE [None]
  - PAIN [None]
  - ECTOPIC PREGNANCY [None]
  - PREGNANCY ON CONTRACEPTIVE [None]
